FAERS Safety Report 6779102-0 (Version None)
Quarter: 2010Q2

REPORT INFORMATION
  Report Type: 
  Country: None (occurrence: None)
  Receive Date: 20100618
  Receipt Date: 20100614
  Transmission Date: 20101027
  Serious: Yes (Hospitalization, Other)
  Sender: FDA-Public Use
  Company Number: DE-BRISTOL-MYERS SQUIBB COMPANY-15055130

PATIENT
  Age: 47 Year
  Sex: Female
  Weight: 59 kg

DRUGS (8)
  1. SPRYCEL [Suspect]
     Indication: ACUTE MYELOID LEUKAEMIA
     Dates: start: 20100326, end: 20100407
  2. CYTARABINE [Suspect]
     Indication: ACUTE MYELOID LEUKAEMIA
     Dates: start: 20100319, end: 20100325
  3. DAUNORUBICIN HCL [Suspect]
     Indication: ACUTE MYELOID LEUKAEMIA
     Dates: start: 20100319, end: 20100321
  4. MEROPENEM [Concomitant]
  5. VANCOMYCIN [Concomitant]
  6. METRONIDAZOLE [Concomitant]
  7. AMPHOTERICIN B [Concomitant]
  8. GRANULOCYTE CSF [Concomitant]

REACTIONS (4)
  - CHOLECYSTITIS ACUTE [None]
  - PNEUMONIA PRIMARY ATYPICAL [None]
  - SEPSIS [None]
  - THROMBOCYTOPENIA [None]
